FAERS Safety Report 5379970-3 (Version None)
Quarter: 2007Q3

REPORT INFORMATION
  Report Type: 
  Country: None (occurrence: None)
  Receive Date: 20070706
  Receipt Date: 20070626
  Transmission Date: 20080115
  Serious: Yes (Hospitalization, Other)
  Sender: FDA-Public Use
  Company Number: JP-PFIZER INC-2007050967

PATIENT
  Age: 15 Year
  Sex: Female

DRUGS (1)
  1. SOLANAX [Suspect]

REACTIONS (2)
  - FEELING ABNORMAL [None]
  - OVERDOSE [None]
